FAERS Safety Report 20876273 (Version 2)
Quarter: 2022Q2

REPORT INFORMATION
  Report Type: Other
  Country: US (occurrence: None)
  Receive Date: 20220526
  Receipt Date: 20220614
  Transmission Date: 20220721
  Serious: Yes (Other)
  Sender: FDA-Public Use
  Company Number: US-ROCHE-3094772

PATIENT
  Sex: Female

DRUGS (1)
  1. OCREVUS [Suspect]
     Active Substance: OCRELIZUMAB
     Indication: Multiple sclerosis
     Dosage: 600MG EVERY 6 MONTHS?LAST DOSE RECEIVED ON /AUG/2021.
     Route: 065

REACTIONS (6)
  - Multiple sclerosis [Unknown]
  - Vitamin D decreased [Unknown]
  - Muscle spasms [Unknown]
  - Fatigue [Unknown]
  - Hypertonia [Unknown]
  - Hyperreflexia [Unknown]
